FAERS Safety Report 4878004-4 (Version None)
Quarter: 2005Q4

REPORT INFORMATION
  Report Type: 
  Country: None (occurrence: None)
  Receive Date: 20051206
  Receipt Date: 20050830
  Transmission Date: 20060501
  Serious: No
  Sender: FDA-Public Use
  Company Number: USA0508106759

PATIENT
  Age: 61 Year
  Sex: Female
  Weight: 68 kg

DRUGS (5)
  1. CYMBALTA [Suspect]
     Indication: DEPRESSION
     Dosage: 60 MG
  2. SYNTHROID [Concomitant]
  3. XANAX [Concomitant]
  4. ... [Concomitant]
  5. ..... [Concomitant]

REACTIONS (3)
  - HYPOAESTHESIA [None]
  - NECK PAIN [None]
  - PARAESTHESIA [None]
